FAERS Safety Report 8598607-3 (Version None)
Quarter: 2012Q3

REPORT INFORMATION
  Report Type: 
  Country: None (occurrence: None)
  Receive Date: 20120816
  Receipt Date: 20120807
  Transmission Date: 20120928
  Serious: Yes (Other)
  Sender: FDA-Public Use
  Company Number: CH-ROCHE-1099057

PATIENT
  Sex: Female

DRUGS (2)
  1. HERCEPTIN [Suspect]
     Indication: BREAST CANCER
     Route: 042
  2. TAMOXIFEN CITRATE [Concomitant]
     Indication: BREAST CANCER

REACTIONS (2)
  - DEAFNESS UNILATERAL [None]
  - TINNITUS [None]
